FAERS Safety Report 7586685-X (Version None)
Quarter: 2011Q3

REPORT INFORMATION
  Report Type: 
  Country: None (occurrence: None)
  Receive Date: 20110701
  Receipt Date: 20110617
  Transmission Date: 20111222
  Serious: Yes (Hospitalization)
  Sender: FDA-Public Use
  Company Number: IT-BAYER-2011-053119

PATIENT
  Age: 86 Year
  Sex: Male

DRUGS (1)
  1. ACETYLSALICYLIC ACID SRT [Suspect]
     Dosage: DAILY DOSE 100 MG
     Route: 048
     Dates: start: 20050101, end: 20110326

REACTIONS (3)
  - ANAEMIA [None]
  - EPISTAXIS [None]
  - MELAENA [None]
